FAERS Safety Report 10156411 (Version 1)
Quarter: 2014Q2

REPORT INFORMATION
  Report Type: Not Available
  Country: US (occurrence: US)
  Receive Date: 20140507
  Receipt Date: 20140507
  Transmission Date: 20141212
  Serious: No
  Sender: FDA-Public Use
  Company Number: US-LUPIN PHARMACEUTICALS INC.-E2B_00001555

PATIENT
  Age: 68 Year
  Sex: Female
  Weight: 70.37 kg

DRUGS (1)
  1. IMIPRAMINE PAMOATE CAPSULES 125MG [Suspect]
     Indication: DEPRESSION
     Dates: start: 201312

REACTIONS (3)
  - Depression [Not Recovered/Not Resolved]
  - Drug ineffective [Not Recovered/Not Resolved]
  - Product substitution issue [Not Recovered/Not Resolved]
